FAERS Safety Report 16370892 (Version 1)
Quarter: 2019Q2

REPORT INFORMATION
  Report Type: Spontaneous
  Country: US (occurrence: US)
  Receive Date: 20190423
  Receipt Date: 20190423
  Transmission Date: 20190711
  Serious: Yes (Hospitalization)
  Sender: FDA-Public Use
  Company Number: None

PATIENT
  Age: 60 Year
  Sex: Male

DRUGS (7)
  1. PANTOPRAZOLE 40MG [Concomitant]
     Active Substance: PANTOPRAZOLE SODIUM
  2. BENZONATATE 100MG [Concomitant]
     Active Substance: BENZONATATE
  3. GABAPENTIN 300 MG [Concomitant]
     Active Substance: GABAPENTIN
  4. VIRTUSSIN AC SOL [Concomitant]
  5. POLYETH GLY [Concomitant]
  6. CAPECITABINE 500 MG TAB [Suspect]
     Active Substance: CAPECITABINE
     Indication: COLON CANCER
     Dosage: ?          OTHER FREQUENCY:AM +PM FOR 14 DAYS;?
     Route: 048
     Dates: start: 20190404
  7. AMLODIPINE 10 MG [Concomitant]
     Active Substance: AMLODIPINE BESYLATE

REACTIONS (4)
  - Disorientation [None]
  - Abdominal pain upper [None]
  - Hypoaesthesia [None]
  - Dizziness [None]

NARRATIVE: CASE EVENT DATE: 201904
